FAERS Safety Report 5486158-4 (Version None)
Quarter: 2007Q4

REPORT INFORMATION
  Report Type: 
  Country: None (occurrence: None)
  Receive Date: 20071015
  Receipt Date: 20071003
  Transmission Date: 20080405
  Serious: Yes (Other)
  Sender: FDA-Public Use
  Company Number: US-PFIZER INC-2007056170

PATIENT
  Sex: Male
  Weight: 77 kg

DRUGS (5)
  1. GEODON [Suspect]
     Indication: SCHIZOPHRENIA
     Dates: start: 20070308, end: 20070701
  2. VALIUM [Suspect]
  3. ARTANE [Suspect]
  4. BENADRYL [Suspect]
     Route: 048
  5. MYSOLINE ^ICI^ [Suspect]

REACTIONS (16)
  - ABASIA [None]
  - AGITATION [None]
  - CHOREA [None]
  - COLITIS ULCERATIVE [None]
  - DISABILITY [None]
  - DIZZINESS [None]
  - DYSSTASIA [None]
  - EXTRAPYRAMIDAL DISORDER [None]
  - IMPAIRED DRIVING ABILITY [None]
  - NAUSEA [None]
  - NERVOUSNESS [None]
  - READING DISORDER [None]
  - RESTLESSNESS [None]
  - SOMNOLENCE [None]
  - TORTICOLLIS [None]
  - VISION BLURRED [None]
